FAERS Safety Report 25871298 (Version 1)
Quarter: 2025Q4

REPORT INFORMATION
  Report Type: Spontaneous
  Country: KR (occurrence: KR)
  Receive Date: 20251001
  Receipt Date: 20251001
  Transmission Date: 20260117
  Serious: Yes (Hospitalization, Other)
  Sender: NOVO NORDISK
  Company Number: KR-NOVOPROD-1529460

PATIENT
  Age: 38 Year
  Sex: Female
  Weight: 70 kg

DRUGS (3)
  1. WEGOVY [Suspect]
     Active Substance: SEMAGLUTIDE
     Indication: Weight control
     Dosage: 0.25 MG, QW
     Route: 058
  2. ENAVOGLIFLOZIN [Suspect]
     Active Substance: ENAVOGLIFLOZIN
     Indication: Type 2 diabetes mellitus
     Dosage: 0.3 MG, QD
  3. METFORMIN [Concomitant]
     Active Substance: METFORMIN HYDROCHLORIDE
     Indication: Type 2 diabetes mellitus
     Dosage: 1000 MG, QD

REACTIONS (1)
  - Euglycaemic diabetic ketoacidosis [Recovered/Resolved]
